FAERS Safety Report 25060075 (Version 2)
Quarter: 2025Q1

REPORT INFORMATION
  Report Type: Spontaneous
  Country: US (occurrence: US)
  Receive Date: 20250310
  Receipt Date: 20250315
  Transmission Date: 20250409
  Serious: No
  Sender: SANOFI AVENTIS
  Company Number: US-SA-2025SA069145

PATIENT
  Age: 70 Year
  Sex: Male

DRUGS (1)
  1. DUPIXENT [Suspect]
     Active Substance: DUPILUMAB
     Indication: Asthma
     Dosage: 200 MG, QOW
     Route: 058

REACTIONS (6)
  - Loss of personal independence in daily activities [Unknown]
  - Dyspnoea [Unknown]
  - Dry eye [Unknown]
  - Weight increased [Unknown]
  - Cardiac disorder [Unknown]
  - Nephropathy [Unknown]

NARRATIVE: CASE EVENT DATE: 20250201
